FAERS Safety Report 9252652 (Version 1)
Quarter: 2013Q2

REPORT INFORMATION
  Report Type: Report from Study
  Country: US (occurrence: US)
  Receive Date: 20130424
  Receipt Date: 20130424
  Transmission Date: 20140414
  Serious: Yes (Other)
  Sender: FDA-Public Use
  Company Number: US-GLAXOSMITHKLINE-A1021024A

PATIENT
  Age: 67 Year
  Sex: Male

DRUGS (9)
  1. IMITREX [Suspect]
     Indication: MIGRAINE
  2. HUMIRA [Suspect]
     Indication: COLITIS ULCERATIVE
     Dosage: 40MG EVERY TWO WEEKS
     Dates: start: 20130103, end: 201302
  3. HUMIRA [Suspect]
     Indication: COLITIS ULCERATIVE
     Dosage: 40MG WEEKLY
     Dates: start: 201302
  4. INVESTIGATIONAL DRUG [Suspect]
  5. ADVAIR [Concomitant]
     Indication: ASTHMA
     Dosage: 250MG TWICE PER DAY
  6. ZOCOR [Concomitant]
     Indication: BLOOD CHOLESTEROL
  7. BABY ASPIRIN [Concomitant]
     Indication: CARDIOVASCULAR EVENT PROPHYLAXIS
  8. FINASTERIDE [Concomitant]
     Indication: BENIGN PROSTATIC HYPERPLASIA
     Dates: end: 201302
  9. TERAZOSIN [Concomitant]
     Indication: BENIGN PROSTATIC HYPERPLASIA
     Dates: end: 201302

REACTIONS (2)
  - Feeling abnormal [Recovering/Resolving]
  - Injection site bruising [Unknown]
